FAERS Safety Report 9734434 (Version 2)
Quarter: 2013Q4

REPORT INFORMATION
  Report Type: Spontaneous
  Country: US (occurrence: US)
  Receive Date: 20131206
  Receipt Date: 20131206
  Transmission Date: 20140711
  Serious: Yes (Other)
  Sender: FDA-Public Use
  Company Number: US-BEH-2013035233

PATIENT
  Age: 5 Year
  Sex: Male
  Weight: 20 kg

DRUGS (14)
  1. PRIVIGEN [Suspect]
     Route: 042
     Dates: start: 20130328, end: 20130401
  2. PRIVIGEN [Suspect]
     Route: 042
  3. PRIVIGEN [Suspect]
     Route: 042
  4. PRIVIGEN [Suspect]
     Indication: CONGENITAL HYPOGAMMAGLOBULINAEMIA
     Route: 042
  5. PRIVIGEN [Suspect]
     Route: 042
  6. IBUPROFEN [Suspect]
     Dates: start: 20130401, end: 20130401
  7. DIPHENHYDRAMINE [Concomitant]
     Indication: PREMEDICATION
  8. LIDOCAINE/PRILOCAINE [Concomitant]
     Indication: PREMEDICATION
  9. NORMAL SALINE [Concomitant]
     Indication: PREMEDICATION
  10. SODIUM CHLORIDE [Concomitant]
     Indication: PREMEDICATION
  11. EPI-PEN [Concomitant]
     Indication: PREMEDICATION
  12. NASONEX [Concomitant]
     Route: 045
  13. CHILD ZYRTEC [Concomitant]
     Dosage: 1 MG/ML
  14. IBUPROFEN [Concomitant]

REACTIONS (8)
  - Headache [Unknown]
  - Pyrexia [Unknown]
  - Pyrexia [Unknown]
  - Headache [Unknown]
  - Nausea [Unknown]
  - Neck pain [Unknown]
  - Adverse drug reaction [Unknown]
  - Activities of daily living impaired [Unknown]
